FAERS Safety Report 6609099-5 (Version None)
Quarter: 2010Q1

REPORT INFORMATION
  Report Type: 
  Country: None (occurrence: None)
  Receive Date: 20100212
  Receipt Date: 20091227
  Transmission Date: 20100710
  Serious: Yes (Other)
  Sender: FDA-Public Use
  Company Number: OMX-2009-00085

PATIENT

DRUGS (2)
  1. EVICEL [Suspect]
     Indication: TISSUE SEALING
  2. DURAGEN PLUS [Concomitant]

REACTIONS (5)
  - IATROGENIC INJURY [None]
  - OFF LABEL USE [None]
  - POST PROCEDURAL COMPLICATION [None]
  - PRODUCT DEPOSIT [None]
  - SURGICAL PROCEDURE REPEATED [None]
